FAERS Safety Report 4569378-2 (Version None)
Quarter: 2005Q1

REPORT INFORMATION
  Report Type: 
  Country: None (occurrence: None)
  Receive Date: 20050203
  Receipt Date: 20050121
  Transmission Date: 20050727
  Serious: Yes (Hospitalization)
  Sender: FDA-Public Use
  Company Number: US-ROCHE-393150

PATIENT
  Age: 36 Year
  Sex: Female
  Weight: 48.2 kg

DRUGS (14)
  1. PEG-INTERFERON ALFA 2A (RO 25-8310) [Suspect]
     Indication: HEPATITIS C
     Route: 058
     Dates: start: 20030829
  2. PEG-INTERFERON ALFA 2A (RO 25-8310) [Suspect]
     Route: 058
  3. PEG-INTERFERON ALFA 2A (RO 25-8310) [Suspect]
     Route: 058
     Dates: end: 20031226
  4. PEG-INTERFERON ALFA 2A (RO 25-8310) [Suspect]
     Route: 058
     Dates: start: 20040102, end: 20040102
  5. PEG-INTERFERON ALFA 2A (RO 25-8310) [Suspect]
     Route: 058
  6. RIBAVIRIN [Suspect]
     Indication: HEPATITIS C
     Route: 048
     Dates: start: 20030829
  7. ZOLOFT [Suspect]
     Indication: DRUG USE FOR UNKNOWN INDICATION
     Route: 065
  8. PAMIDRONATE [Suspect]
     Indication: DRUG USE FOR UNKNOWN INDICATION
     Dosage: NO UNITS PROVIDED.
     Route: 065
  9. DESFERAL [Concomitant]
     Dosage: STARTED PRIOR TO TRIAL.
  10. CALCIUM GLUCONATE [Concomitant]
  11. KETOPROFEN [Concomitant]
     Dates: start: 20030830
  12. OXYCODONE HCL [Concomitant]
     Dates: start: 20030831
  13. VIT C [Concomitant]
  14. UNIDENTIFIED MEDICATIONS [Concomitant]
     Dosage: REPORTED AS ACULERA.

REACTIONS (22)
  - AGITATION [None]
  - ARTHRALGIA [None]
  - ATELECTASIS [None]
  - BACK PAIN [None]
  - BLOOD CALCIUM DECREASED [None]
  - BLOOD POTASSIUM DECREASED [None]
  - CHILLS [None]
  - COUGH [None]
  - DRUG INEFFECTIVE [None]
  - FATIGUE [None]
  - HEADACHE [None]
  - HYPERTENSION [None]
  - LUNG INFILTRATION [None]
  - MALAISE [None]
  - NECK PAIN [None]
  - NEUTROPHIL COUNT INCREASED [None]
  - PHARYNGOLARYNGEAL PAIN [None]
  - PNEUMONIA [None]
  - PYREXIA [None]
  - THROMBOCYTOPENIA [None]
  - VIRAL INFECTION [None]
  - WHITE BLOOD CELL COUNT INCREASED [None]
